FAERS Safety Report 6983760-5 (Version None)
Quarter: 2010Q3

REPORT INFORMATION
  Report Type: 
  Country: None (occurrence: None)
  Receive Date: 20100914
  Receipt Date: 20090128
  Transmission Date: 20110219
  Serious: No
  Sender: FDA-Public Use
  Company Number: US-WYE-H08065309

PATIENT
  Age: 75 Year
  Sex: Female

DRUGS (3)
  1. ADVIL LIQUI-GELS [Suspect]
     Indication: HEADACHE
     Dosage: UNKNOWN
     Route: 048
  2. ADVIL LIQUI-GELS [Suspect]
     Indication: ARTHRITIS
  3. ADVIL LIQUI-GELS [Suspect]
     Indication: PAIN

REACTIONS (1)
  - ULCER [None]
